FAERS Safety Report 23636351 (Version 1)
Quarter: 2024Q1

REPORT INFORMATION
  Report Type: Report from Study
  Country: US (occurrence: US)
  Receive Date: 20240315
  Receipt Date: 20240315
  Transmission Date: 20240410
  Serious: Yes (Hospitalization, Other)
  Sender: FDA-Public Use
  Company Number: US-SANOFI-01976984

PATIENT
  Age: 34 Year
  Sex: Female

DRUGS (2)
  1. ENOXAPARIN SODIUM [Suspect]
     Active Substance: ENOXAPARIN SODIUM
     Indication: Deep vein thrombosis
     Dosage: 150 MG, QD
  2. ENOXAPARIN SODIUM [Suspect]
     Active Substance: ENOXAPARIN SODIUM
     Indication: Embolism

REACTIONS (2)
  - Pain [Recovered/Resolved]
  - Paralysis [Recovered/Resolved]

NARRATIVE: CASE EVENT DATE: 20240121
